FAERS Safety Report 4744756-7 (Version None)
Quarter: 2005Q3

REPORT INFORMATION
  Report Type: 
  Country: None (occurrence: None)
  Receive Date: 20050815
  Receipt Date: 20050811
  Transmission Date: 20060218
  Serious: Yes (Hospitalization)
  Sender: FDA-Public Use
  Company Number: PHNU2005DE02850

PATIENT
  Age: 66 Year
  Sex: Male

DRUGS (2)
  1. TRILEPTAL [Suspect]
     Indication: TEMPORAL LOBE EPILEPSY
     Dosage: 150 MG, QD
     Route: 048
     Dates: start: 20050729
  2. TRILEPTAL [Suspect]
     Dosage: 150 MG, TID
     Route: 048
     Dates: end: 20050806

REACTIONS (10)
  - ABDOMINAL PAIN UPPER [None]
  - ABNORMAL SENSATION IN EYE [None]
  - BALANCE DISORDER [None]
  - BLOOD CREATINE PHOSPHOKINASE INCREASED [None]
  - DIPLOPIA [None]
  - DIZZINESS [None]
  - EXTRAOCULAR MUSCLE DISORDER [None]
  - EYELID OEDEMA [None]
  - FATIGUE [None]
  - HEPATIC ENZYME ABNORMAL [None]
